FAERS Safety Report 8373556-4 (Version None)
Quarter: 2012Q2

REPORT INFORMATION
  Report Type: 
  Country: None (occurrence: None)
  Receive Date: 20120517
  Receipt Date: 20110816
  Transmission Date: 20120825
  Serious: Yes (Hospitalization, Other)
  Sender: FDA-Public Use
  Company Number: ES-023402

PATIENT
  Age: 82 Year
  Sex: Male

DRUGS (1)
  1. CHLORAMBUCIL (CHLORAMBUCIL) (TABLET) [Suspect]
     Indication: CHRONIC LYMPHOCYTIC LEUKAEMIA
     Dosage: 35MG EVERY TWO WEEKS (35 MILLIGRAM, 1), ORAL
     Route: 048
     Dates: start: 20101124

REACTIONS (12)
  - SEPSIS [None]
  - RESPIRATORY FAILURE [None]
  - RECTAL HAEMORRHAGE [None]
  - NEUTROPENIA [None]
  - PLATELET COUNT DECREASED [None]
  - THROMBOCYTOPENIA [None]
  - MULTI-ORGAN FAILURE [None]
  - LUNG INFECTION [None]
  - METABOLIC DISORDER [None]
  - BACTERAEMIA [None]
  - HYPOTENSION [None]
  - RENAL FAILURE [None]
